FAERS Safety Report 18536477 (Version 2)
Quarter: 2021Q1

REPORT INFORMATION
  Report Type: Spontaneous
  Country: FR (occurrence: FR)
  Receive Date: 20201123
  Receipt Date: 20210104
  Transmission Date: 20210419
  Serious: Yes (Other)
  Sender: FDA-Public Use
  Company Number: FR-009507513-2011FRA009240

PATIENT
  Age: 27 Year
  Sex: Female
  Weight: 55 kg

DRUGS (1)
  1. NEXPLANON [Suspect]
     Active Substance: ETONOGESTREL
     Indication: CONTRACEPTION
     Dosage: 1 DOSAGE FORM, ONCE (REPORTED AS ^1 TOTAL), IMPLANT FOR SUBCUTANEOUS USE
     Route: 058
     Dates: start: 20190807, end: 20191019

REACTIONS (3)
  - Device dislocation [Recovered/Resolved]
  - Drug ineffective [Not Recovered/Not Resolved]
  - Pregnancy [Not Recovered/Not Resolved]

NARRATIVE: CASE EVENT DATE: 202006
